FAERS Safety Report 22604432 (Version 1)
Quarter: 2023Q2

REPORT INFORMATION
  Report Type: Other
  Country: GB (occurrence: GB)
  Receive Date: 20230615
  Receipt Date: 20230615
  Transmission Date: 20230721
  Serious: Yes (Hospitalization, Other)
  Sender: FDA-Public Use
  Company Number: None

PATIENT
  Age: 60 Year

DRUGS (6)
  1. DOXORUBICIN [Suspect]
     Active Substance: DOXORUBICIN
     Indication: Product used for unknown indication
     Dosage: 110 MILLIGRAM, 100MG/50ML, SOLUTION FOR INFUSION, VIALS 50MG/M2 (DOSE-BANDED)
     Route: 065
  2. PREDNISOLONE [Suspect]
     Active Substance: PREDNISOLONE
     Indication: Product used for unknown indication
     Dosage: 90 MILLIGRAM, QD, IN THE MORNING
     Route: 048
  3. SODIUM CHLORIDE [Suspect]
     Active Substance: SODIUM CHLORIDE
     Indication: Product used for unknown indication
     Dosage: 1000MG/250ML
     Route: 065
  4. CYCLOPHOSPHAMIDE [Suspect]
     Active Substance: CYCLOPHOSPHAMIDE
     Indication: Product used for unknown indication
     Dosage: 1800 MILLIGRAM, 1000MG/250ML, 750MG/M2 (DOSE-BANDED))
     Route: 039
  5. POLATUZUMAB VEDOTIN [Suspect]
     Active Substance: POLATUZUMAB VEDOTIN
     Indication: Product used for unknown indication
     Dosage: 220 MILLIGRAM, POWDER FOR SOLUTION FOR INFUSION, 1.8MG/KG (DOSE BANDED)
     Route: 042
  6. RITUXIMAB [Suspect]
     Active Substance: RITUXIMAB
     Indication: Product used for unknown indication
     Dosage: 900 MILLIGRAM, 500MG/50ML, 375MG/M2, (DOSE-BANDED)
     Route: 042

REACTIONS (2)
  - Pancytopenia [Unknown]
  - Sepsis [Unknown]
